FAERS Safety Report 9007981 (Version 1)
Quarter: 2013Q1

REPORT INFORMATION
  Report Type: Spontaneous
  Country: US (occurrence: US)
  Receive Date: 20130111
  Receipt Date: 20130111
  Transmission Date: 20140127
  Serious: Yes (Hospitalization)
  Sender: FDA-Public Use
  Company Number: US-BAYER-2013-003343

PATIENT
  Age: 19 Year
  Sex: Female
  Weight: 124.26 kg

DRUGS (15)
  1. YASMIN [Suspect]
     Dosage: 3-0.03 MG
  2. FLUOXETINE [Concomitant]
     Dosage: 10 MG, QD
     Route: 048
     Dates: start: 20061024
  3. SELENIUM SULFIDE [Concomitant]
     Dosage: 2.5 %, APPLY ON BODY FOR 30 MINUTES THEN WASH OFF, REPEAT IN ONE WEEK
     Route: 061
     Dates: start: 20061024
  4. CITALOPRAM [Concomitant]
     Dosage: 20 MG, ONE HALF TO ONE TABLET DAILY
     Route: 048
     Dates: start: 20070104
  5. EFFEXOR XR [Concomitant]
     Dosage: 37.5 MG, QD
     Route: 048
     Dates: start: 20070113
  6. LORAZEPAM [Concomitant]
     Indication: ANXIETY
     Dosage: 0.5 MG, BID, DAILY
     Route: 048
     Dates: start: 20070113
  7. TRIMETOPRIM + SULFAMETOXAZOL [Concomitant]
     Indication: URINARY TRACT INFECTION
     Dosage: 160MG-800MG, BID FOR 10 DAYS
     Route: 048
     Dates: start: 20070113
  8. IBUPROFEN [Concomitant]
     Dosage: 800 MG, TID, DAILY PRN
     Route: 048
     Dates: start: 20070113
  9. PERCOCET 5/325 [Concomitant]
  10. CEPHALEXIN [Concomitant]
  11. MVI [Concomitant]
  12. MOM [Concomitant]
  13. IRON [Concomitant]
  14. DULCOLAX SUPPOSITORY [Concomitant]
  15. STADOL [Concomitant]
     Indication: PAIN

REACTIONS (3)
  - Pulmonary embolism [None]
  - Pelvic venous thrombosis [None]
  - Deep vein thrombosis [None]
